FAERS Safety Report 4517379-2 (Version None)
Quarter: 2005Q1

REPORT INFORMATION
  Report Type: 
  Country: None (occurrence: None)
  Receive Date: 20041029
  Receipt Date: 20040728
  Transmission Date: 20050727
  Serious: No
  Sender: FDA-Public Use
  Company Number: 2004-116777-NL

PATIENT
  Age: 30 Year
  Sex: Female
  Weight: 59.5 kg

DRUGS (1)
  1. NUVARING [Suspect]
     Dosage: DF DAILY VAGINAL
     Route: 067
     Dates: start: 20030801, end: 20040423

REACTIONS (1)
  - UNINTENDED PREGNANCY [None]
